FAERS Safety Report 4308396-6 (Version None)
Quarter: 2004Q1

REPORT INFORMATION
  Report Type: 
  Country: None (occurrence: None)
  Receive Date: 20040301
  Receipt Date: 20040217
  Transmission Date: 20041129
  Serious: Yes (Hospitalization)
  Sender: FDA-Public Use
  Company Number: SE-GLAXOSMITHKLINE-B0323609A

PATIENT
  Age: 75 Year
  Sex: Female

DRUGS (8)
  1. VALTREX [Suspect]
     Indication: HERPES ZOSTER
     Dosage: 1G PER DAY
     Route: 048
     Dates: start: 20031123, end: 20031123
  2. DIGITOXIN INJ [Concomitant]
  3. FOLIC ACID [Concomitant]
     Dosage: 5MG PER DAY
  4. CYANOCOBALAMIN [Concomitant]
     Dosage: 1MGML PER DAY
     Route: 042
  5. ORALOVITE [Concomitant]
  6. POTASSIUM SALT [Concomitant]
     Dosage: 750MG PER DAY
  7. ESTRADIOL [Concomitant]
     Dosage: 1MG PER DAY
  8. CALCIUM GLUCONATE CHEWABLE TABLETS [Concomitant]
     Dosage: 500MG PER DAY

REACTIONS (3)
  - CLOSTRIDIUM COLITIS [None]
  - CONFUSIONAL STATE [None]
  - ENCEPHALITIS [None]
